FAERS Safety Report 9153660 (Version 1)
Quarter: 2013Q1

REPORT INFORMATION
  Report Type: Spontaneous
  Country: DK (occurrence: None)
  Receive Date: 20130222
  Receipt Date: 20130222
  Transmission Date: 20140127
  Serious: Yes (Other)
  Sender: FDA-Public Use
  Company Number: 2013MA001255

PATIENT
  Age: 46 Year
  Sex: Male

DRUGS (3)
  1. BISOPROLOL FUMARATE AND HYDROCHLOROTHIAZIDE TABLETS, 10 MG/6,25 MG (PUREPAC) (GALENIC/BISOPROLOL/HYDROCHLOROTHIAZIDE/) [Suspect]
     Indication: HYPERTENSION
     Route: 048
     Dates: start: 20130114
  2. RAMIPRIL [Concomitant]
  3. DOXAZOSIN [Concomitant]

REACTIONS (9)
  - Personality change [None]
  - Cognitive disorder [None]
  - Dementia [None]
  - Dissociation [None]
  - Amnesia [None]
  - Anger [None]
  - Frustration [None]
  - Impaired work ability [None]
  - Impaired driving ability [None]
